FAERS Safety Report 7462216-X (Version None)
Quarter: 2011Q2

REPORT INFORMATION
  Report Type: 
  Country: None (occurrence: None)
  Receive Date: 20110506
  Receipt Date: 20091023
  Transmission Date: 20111010
  Serious: Yes (Death, Hospitalization, Other)
  Sender: FDA-Public Use
  Company Number: US-BAYER-200936810NA

PATIENT
  Age: 80 Year
  Sex: Female
  Weight: 55 kg

DRUGS (68)
  1. COREG [Concomitant]
     Dosage: 12.5 MG, UNK
     Route: 048
     Dates: start: 20050908, end: 20050927
  2. ACYCLOVIR [Concomitant]
     Indication: PRODUCT USED FOR UNKNOWN INDICATION
     Dosage: 5 % UNK
     Route: 062
     Dates: start: 20050913
  3. CARDIZEM [Concomitant]
     Indication: PRODUCT USED FOR UNKNOWN INDICATION
     Dosage: TITRATED
     Route: 042
     Dates: start: 20051002
  4. CARDIZEM [Concomitant]
     Dosage: 60 MG, UNK
     Route: 048
     Dates: start: 20051006
  5. FUROSEMIDE [Concomitant]
     Dosage: 40 MG, UNK
     Dates: start: 20050910, end: 20050911
  6. VECURONIUM BROMIDE [Concomitant]
     Dosage: 5.8 MG, TOTAL
     Dates: start: 20051010
  7. NORMOSOL [Concomitant]
     Indication: PRODUCT USED FOR UNKNOWN INDICATION
     Dosage: 1010 ML IRRIGATION, UNK
     Dates: start: 20051010
  8. TRASYLOL [Suspect]
     Dosage: 6 MILLION KIU/HOUR INFUSION
     Route: 042
     Dates: end: 20051010
  9. NEXIUM [Concomitant]
     Indication: PRODUCT USED FOR UNKNOWN INDICATION
     Dosage: 40 MG, QD
     Route: 048
  10. DIFLUCAN [Concomitant]
     Indication: URINARY TRACT INFECTION
     Dosage: 100 MG FOR 5 DAYS
     Route: 048
  11. DOPAMINE HCL [Concomitant]
     Indication: PRODUCT USED FOR UNKNOWN INDICATION
     Dosage: 5 MCG/KG/MINUTE
     Route: 042
     Dates: start: 20051004
  12. HEPARIN [Concomitant]
     Indication: PRODUCT USED FOR UNKNOWN INDICATION
     Dosage: TITRATED
     Route: 042
     Dates: start: 20051002
  13. SOLU-MEDROL [Concomitant]
     Indication: PRODUCT USED FOR UNKNOWN INDICATION
     Dosage: 20 MG, EVERY 12 HOURS
     Route: 042
     Dates: start: 20051005
  14. KLOR-CON [Concomitant]
     Indication: PRODUCT USED FOR UNKNOWN INDICATION
     Dosage: UNK
     Dates: start: 20040101
  15. CITALOPRAM [Concomitant]
     Indication: PRODUCT USED FOR UNKNOWN INDICATION
     Dosage: UNK
     Dates: start: 20040101
  16. RAMIPRIL [Concomitant]
     Indication: PRODUCT USED FOR UNKNOWN INDICATION
     Dosage: 5 MG, UNK
     Route: 048
     Dates: start: 20050914, end: 20051005
  17. CEFTRIAXONE [Concomitant]
     Indication: PRODUCT USED FOR UNKNOWN INDICATION
     Dosage: 1 G, UNK
     Dates: start: 20050909
  18. FENTANYL [Concomitant]
     Dosage: 410 MCG TOTAL UNK
     Dates: start: 20051010
  19. SODIUM CHLORIDE [Concomitant]
     Indication: PRODUCT USED FOR UNKNOWN INDICATION
     Dosage: 2000 MG TOTAL, UNK
     Dates: start: 20051010
  20. COREG [Concomitant]
     Dosage: 3.125 MG, UNK
     Dates: start: 20050301
  21. LASIX [Concomitant]
     Indication: PRODUCT USED FOR UNKNOWN INDICATION
     Dosage: 20 MG, QD
     Route: 048
  22. ALTACE [Concomitant]
     Indication: PRODUCT USED FOR UNKNOWN INDICATION
     Dosage: 5 MG, QD
     Route: 048
  23. DOPAMINE HCL [Concomitant]
     Dosage: 13420 MCG TOTAL IN D5W
     Route: 041
     Dates: start: 20051010
  24. HYDROCORTISONE [Concomitant]
     Dosage: 20 MG, UNK CHRONIC
  25. DIGOXIN [Concomitant]
     Indication: PRODUCT USED FOR UNKNOWN INDICATION
     Dosage: 0.125 MG, UNK
     Route: 048
     Dates: start: 20050101
  26. GENTAMICIN [Concomitant]
     Indication: PRODUCT USED FOR UNKNOWN INDICATION
     Dosage: (ADMIX) UNK
     Dates: start: 20050910
  27. CEFAZOLIN [Concomitant]
     Indication: PRODUCT USED FOR UNKNOWN INDICATION
     Dosage: 1000 MG TOTAL, UNK
     Route: 042
     Dates: start: 20051010
  28. CEFAZOLIN [Concomitant]
     Dosage: 1 G TOTAL, UNK
     Route: 042
     Dates: start: 20051010
  29. INSULIN HUMAN [Concomitant]
     Indication: PRODUCT USED FOR UNKNOWN INDICATION
     Dosage: 4.1 U TOTAL, UNK
     Route: 042
     Dates: start: 20051010
  30. PROTAMINE SULFATE [Concomitant]
     Indication: PRODUCT USED FOR UNKNOWN INDICATION
     Dosage: 250 MG TOTAL, UNK
     Route: 042
     Dates: start: 20051010
  31. TRASYLOL [Suspect]
     Indication: MITRAL VALVE REPLACEMENT
     Dosage: 100 ML PUMP PRIME
     Route: 042
     Dates: start: 20051010
  32. LOVENOX [Concomitant]
     Indication: PRODUCT USED FOR UNKNOWN INDICATION
     Dosage: 1 MG/KG
     Route: 058
     Dates: start: 20051008
  33. CEFTRIAXONE [Concomitant]
     Dosage: 2 G, UNK
     Dates: start: 20050910
  34. ALLOPURINOL [Concomitant]
     Indication: PRODUCT USED FOR UNKNOWN INDICATION
     Dosage: 600 MG X 2 DOSES, UNK
     Route: 048
     Dates: start: 20051010, end: 20051010
  35. MIDAZOLAM [Concomitant]
     Indication: PRODUCT USED FOR UNKNOWN INDICATION
     Dosage: 10 MG TOTAL, UNK
     Route: 042
     Dates: start: 20051010
  36. TRASYLOL [Suspect]
     Dosage: 1400 ML TOTAL INFUSION
     Route: 042
  37. POTASSIUM [POTASSIUM] [Concomitant]
     Indication: PRODUCT USED FOR UNKNOWN INDICATION
     Dosage: 20 MEQ, BID
     Route: 048
  38. FLAGYL [Concomitant]
     Indication: URINARY TRACT INFECTION
     Dosage: 250 MG FOR 5 DAYS
     Route: 048
  39. CORTEF [Concomitant]
     Indication: PRODUCT USED FOR UNKNOWN INDICATION
     Dosage: 20 MG, BID
     Route: 048
  40. FUROSEMIDE [Concomitant]
     Indication: PRODUCT USED FOR UNKNOWN INDICATION
     Dosage: 20 MG, UNK
     Route: 048
     Dates: start: 20040101
  41. DILTIAZEM [Concomitant]
     Indication: PRODUCT USED FOR UNKNOWN INDICATION
     Dosage: 25 MG, UNK
     Dates: start: 20050910, end: 20050911
  42. ETOMIDATE [Concomitant]
     Indication: PRODUCT USED FOR UNKNOWN INDICATION
     Dosage: 10 MG TOTAL, UNK
     Dates: start: 20051010
  43. NITROGLYCERIN [Concomitant]
     Dosage: 270 MCG TOTAL IN D5W
     Route: 042
     Dates: start: 20051010
  44. SYNTHROID [Concomitant]
     Indication: PRODUCT USED FOR UNKNOWN INDICATION
     Dosage: 100 MCG
     Route: 048
     Dates: start: 19920101, end: 20050101
  45. HEPARIN [Concomitant]
     Dosage: 30000 U TOTAL, UNK
     Route: 042
     Dates: start: 20051010
  46. VITAMIN K [VITAMIN K NOS] [Concomitant]
     Indication: PRODUCT USED FOR UNKNOWN INDICATION
     Dosage: 5 MG, UNK
     Route: 058
     Dates: start: 20051005
  47. FUROSEMIDE [Concomitant]
     Dosage: 20 MG, UNK
     Dates: start: 20050912, end: 20050924
  48. PIPERACILLIN AND TAZOBACTAM [Concomitant]
     Indication: PRODUCT USED FOR UNKNOWN INDICATION
     Dosage: 3.375 G, UNK
     Dates: start: 20050907
  49. METHYLPREDNISOLONE ACETATE [Concomitant]
     Indication: PRODUCT USED FOR UNKNOWN INDICATION
     Dosage: INJ 4 UNK
     Dates: start: 20050913
  50. HYDROCORTISONE SODIUM SUCCINATE [Concomitant]
     Indication: PRODUCT USED FOR UNKNOWN INDICATION
     Dosage: UNK
     Dates: start: 20050908
  51. FAMOTIDINE [Concomitant]
     Indication: PRODUCT USED FOR UNKNOWN INDICATION
     Dosage: 20 MG TOTAL, UNK
     Route: 042
     Dates: start: 20051010
  52. EPINEPHRINE [Concomitant]
     Indication: PRODUCT USED FOR UNKNOWN INDICATION
     Dosage: 1 MG, UNK TO STERILE FIELD
     Dates: start: 20051010
  53. COREG [Concomitant]
     Indication: PRODUCT USED FOR UNKNOWN INDICATION
     Dosage: 18.75 MG, BID
     Route: 048
  54. REMERON [Concomitant]
     Indication: PRODUCT USED FOR UNKNOWN INDICATION
     Dosage: 15 MG, QD
     Route: 048
  55. HYDROCORTISONE [Concomitant]
     Indication: PRODUCT USED FOR UNKNOWN INDICATION
     Dosage: 10 MG, UNK
     Route: 048
     Dates: start: 20050908
  56. ACETYLSALICYLIC ACID SRT [Concomitant]
     Indication: PRODUCT USED FOR UNKNOWN INDICATION
     Dosage: UNK
     Dates: start: 20040101
  57. FENTANYL [Concomitant]
     Indication: PRODUCT USED FOR UNKNOWN INDICATION
     Dosage: 1000 MCG TOTAL
     Route: 042
     Dates: start: 20051010
  58. LANOXIN [Concomitant]
     Indication: PRODUCT USED FOR UNKNOWN INDICATION
     Dosage: 0.125 MG, QD
     Route: 048
  59. COUMADIN [Concomitant]
     Indication: PRODUCT USED FOR UNKNOWN INDICATION
     Dosage: UNK
     Route: 048
     Dates: start: 20040101
  60. OMNIPAQUE 140 [Concomitant]
     Indication: CATHETERISATION CARDIAC
     Dosage: 10 CC
     Dates: start: 20051007
  61. MIRTAZAPINE [Concomitant]
     Indication: PRODUCT USED FOR UNKNOWN INDICATION
     Dosage: 15 MG, UNK
     Route: 048
     Dates: start: 20050908
  62. LINEZOLID [Concomitant]
     Indication: PRODUCT USED FOR UNKNOWN INDICATION
     Dosage: 600 MG, UNK
     Route: 048
     Dates: start: 20050912, end: 20050916
  63. METRONIDAZOLE [Concomitant]
     Indication: PRODUCT USED FOR UNKNOWN INDICATION
     Dosage: 25 MG, UNK
     Route: 048
     Dates: start: 20050922, end: 20050926
  64. LEVOFLOXACIN [Concomitant]
     Indication: PRODUCT USED FOR UNKNOWN INDICATION
     Dosage: 500 MG, UNK
     Dates: start: 20050301
  65. FLUCONAZOLE [Concomitant]
     Indication: PRODUCT USED FOR UNKNOWN INDICATION
     Dosage: 100 MG, UNK
     Route: 048
     Dates: start: 20050919, end: 20050927
  66. VECURONIUM BROMIDE [Concomitant]
     Indication: PRODUCT USED FOR UNKNOWN INDICATION
     Dosage: 15 MG TOTAL, UNK
     Route: 042
     Dates: start: 20051010
  67. DIPHENHYDRAMINE [Concomitant]
     Indication: PRODUCT USED FOR UNKNOWN INDICATION
     Dosage: 50 MG TOTAL, UNK
     Route: 042
     Dates: start: 20051010
  68. VANCOMYCIN [Concomitant]
     Indication: PRODUCT USED FOR UNKNOWN INDICATION
     Dosage: 500 MG IRRIGATION, UNK
     Dates: start: 20051010

REACTIONS (14)
  - RENAL INJURY [None]
  - EMOTIONAL DISTRESS [None]
  - ANHEDONIA [None]
  - FEAR [None]
  - PAIN [None]
  - RENAL FAILURE [None]
  - RENAL IMPAIRMENT [None]
  - STRESS [None]
  - DEATH [None]
  - RENAL FAILURE ACUTE [None]
  - MULTI-ORGAN FAILURE [None]
  - ANXIETY [None]
  - INJURY [None]
  - UNEVALUABLE EVENT [None]
